FAERS Safety Report 4350919-5 (Version None)
Quarter: 2004Q2

REPORT INFORMATION
  Report Type: 
  Country: None (occurrence: None)
  Receive Date: 20040430
  Receipt Date: 20031029
  Transmission Date: 20050107
  Serious: Yes (Death)
  Sender: FDA-Public Use
  Company Number: US-GLAXOSMITHKLINE-B0313890A

PATIENT
  Age: 50 Year
  Sex: Male

DRUGS (4)
  1. WELLBUTRIN [Suspect]
     Dosage: 60TAB CUMULATIVE DOSE
     Route: 048
  2. LORAZEPAM [Suspect]
     Route: 048
  3. DIPHENHYDRAMINE HCL [Suspect]
     Route: 048
  4. SERTRALINE [Concomitant]
     Dosage: 30TAB CUMULATIVE DOSE
     Route: 048

REACTIONS (14)
  - BLOOD PRESSURE INCREASED [None]
  - BUNDLE BRANCH BLOCK LEFT [None]
  - CARDIAC ARREST [None]
  - COMPLETED SUICIDE [None]
  - CONVULSION [None]
  - HYPOTHERMIA [None]
  - HYPOXIA [None]
  - INJURY [None]
  - LOSS OF CONSCIOUSNESS [None]
  - NERVOUS SYSTEM DISORDER [None]
  - OVERDOSE [None]
  - PUPIL FIXED [None]
  - RHABDOMYOLYSIS [None]
  - VENTRICULAR FIBRILLATION [None]
